FAERS Safety Report 5599080-X (Version None)
Quarter: 2008Q1

REPORT INFORMATION
  Report Type: 
  Country: None (occurrence: None)
  Receive Date: 20080117
  Receipt Date: 20080107
  Transmission Date: 20080703
  Serious: Yes (Death)
  Sender: FDA-Public Use
  Company Number: 2007001007

PATIENT
  Age: 84 Year
  Sex: Male

DRUGS (4)
  1. MACUGEN [Suspect]
     Indication: MACULAR DEGENERATION
     Dosage: (ONCE), INTRA-VITREAL
     Dates: start: 20060215, end: 20060215
  2. ALPHAGAN [Concomitant]
  3. TIMOPTIC [Concomitant]
  4. VITAMIN B12 [Concomitant]

REACTIONS (7)
  - APNOEA [None]
  - BODY HEIGHT DECREASED [None]
  - CARDIAC FAILURE CONGESTIVE [None]
  - MYOCARDIAL ISCHAEMIA [None]
  - NONSPECIFIC REACTION [None]
  - SUDDEN DEATH [None]
  - WEIGHT DECREASED [None]
